FAERS Safety Report 17997241 (Version 2)
Quarter: 2020Q3

REPORT INFORMATION
  Report Type: Spontaneous
  Country: US (occurrence: US)
  Receive Date: 20200709
  Receipt Date: 20200709
  Transmission Date: 20201103
  Serious: Yes (Other)
  Sender: FDA-Public Use
  Company Number: US-JNJFOC-20200702694

PATIENT

DRUGS (1)
  1. WOMENS ROGAINE [Suspect]
     Active Substance: MINOXIDIL
     Indication: ALOPECIA
     Dosage: USED THIS ONCE PER DAY
     Route: 065

REACTIONS (7)
  - Product use in unapproved indication [Unknown]
  - Depressed mood [Unknown]
  - Agoraphobia [Unknown]
  - Emotional disorder [Unknown]
  - Vomiting [Unknown]
  - Suicidal ideation [Unknown]
  - Alopecia [Not Recovered/Not Resolved]
